FAERS Safety Report 25353435 (Version 2)
Quarter: 2025Q2

REPORT INFORMATION
  Report Type: Spontaneous
  Country: US (occurrence: US)
  Receive Date: 20250523
  Receipt Date: 20250619
  Transmission Date: 20250717
  Serious: No
  Sender: JOHNSON AND JOHNSON
  Company Number: US-JNJFOC-20250526462

PATIENT
  Age: 49 Year
  Sex: Female

DRUGS (6)
  1. TREMFYA [Suspect]
     Active Substance: GUSELKUMAB
     Indication: Colitis ulcerative
     Dates: start: 20250226, end: 20250421
  2. TREMFYA [Suspect]
     Active Substance: GUSELKUMAB
     Dosage: WEEK 0
     Route: 065
  3. TREMFYA [Suspect]
     Active Substance: GUSELKUMAB
     Dosage: WEEK 4
     Route: 065
  4. TREMFYA [Suspect]
     Active Substance: GUSELKUMAB
     Dosage: WEEK 8
     Route: 065
  5. BUPROPION [Concomitant]
     Active Substance: BUPROPION
     Indication: Product used for unknown indication
  6. CLONAZEPAM [Concomitant]
     Active Substance: CLONAZEPAM
     Indication: Product used for unknown indication

REACTIONS (3)
  - Rash [Recovered/Resolved]
  - Nodule [Recovered/Resolved]
  - Urticaria [Recovered/Resolved]

NARRATIVE: CASE EVENT DATE: 20250429
